FAERS Safety Report 4731750-5 (Version None)
Quarter: 2005Q3

REPORT INFORMATION
  Report Type: 
  Country: None (occurrence: None)
  Receive Date: 20050725
  Receipt Date: 20041021
  Transmission Date: 20060218
  Serious: Yes (Disabling)
  Sender: FDA-Public Use
  Company Number: WAES 0306USA00702

PATIENT
  Age: 32 Year
  Sex: Female

DRUGS (4)
  1. VIOXX [Suspect]
     Indication: ARTHRITIS
     Dosage: 25 MG/DAILY/PO
     Route: 048
     Dates: start: 20000217
  2. TUMS [Concomitant]
  3. IBUPROFEN [Concomitant]
  4. VITAMINS (UNSPECIFIED) [Concomitant]

REACTIONS (15)
  - ADVERSE EVENT [None]
  - ARTHRALGIA [None]
  - BACK PAIN [None]
  - COUGH [None]
  - DERMATITIS CONTACT [None]
  - DYSPEPSIA [None]
  - HYPERTENSION [None]
  - INCREASED UPPER AIRWAY SECRETION [None]
  - PAIN IN EXTREMITY [None]
  - PHARYNGOLARYNGEAL PAIN [None]
  - PHOTOSENSITIVITY REACTION [None]
  - PULMONARY CONGESTION [None]
  - PYREXIA [None]
  - SINUSITIS [None]
  - SPUTUM ABNORMAL [None]
